FAERS Safety Report 16892394 (Version 1)
Quarter: 2019Q4

REPORT INFORMATION
  Report Type: Spontaneous
  Country: GB (occurrence: GB)
  Receive Date: 20191007
  Receipt Date: 20191007
  Transmission Date: 20200122
  Serious: Yes (Hospitalization)
  Sender: FDA-Public Use
  Company Number: GB-MYLANLABS-2019M1092339

PATIENT
  Age: 72 Year
  Sex: Female
  Weight: 73.47 kg

DRUGS (5)
  1. SALBUTAMOL [Concomitant]
     Active Substance: ALBUTEROL
     Dosage: UNK
  2. PRASUGREL HYDROCHLORIDE [Concomitant]
     Active Substance: PRASUGREL HYDROCHLORIDE
     Dosage: UNK
  3. BISOPROLOL [Suspect]
     Active Substance: BISOPROLOL
     Indication: HYPERTENSION
     Dosage: 2.5 MILLIGRAM
     Route: 048
     Dates: start: 20140125, end: 20190429
  4. ATORVASTATIN MAGNESIUM. [Concomitant]
     Active Substance: ATORVASTATIN MAGNESIUM
     Dosage: UNK
  5. PERINDOPRIL TERT-BUTYLAMINE [Concomitant]
     Active Substance: PERINDOPRIL ERBUMINE
     Dosage: UNK

REACTIONS (6)
  - Chest pain [Unknown]
  - Dyspnoea [Unknown]
  - Heart rate irregular [Recovered/Resolved]
  - Abdominal pain upper [Unknown]
  - Feeling cold [Unknown]
  - Dizziness [Unknown]

NARRATIVE: CASE EVENT DATE: 20180912
